FAERS Safety Report 8563728-8 (Version None)
Quarter: 2012Q3

REPORT INFORMATION
  Report Type: 
  Country: None (occurrence: None)
  Receive Date: 20120803
  Receipt Date: 20120726
  Transmission Date: 20120928
  Serious: No
  Sender: FDA-Public Use
  Company Number: US-BIOGENIDEC-2012BI028148

PATIENT
  Age: 52 Year
  Sex: Female

DRUGS (5)
  1. MEDICINE (NOS) [Concomitant]
     Indication: CARDIAC VALVE DISEASE
  2. MEDICINE (NOS) [Concomitant]
     Indication: HYPOTENSION
  3. TYSABRI [Concomitant]
     Indication: MULTIPLE SCLEROSIS
     Route: 042
     Dates: start: 20101025, end: 20110221
  4. AVONEX [Suspect]
     Indication: MULTIPLE SCLEROSIS
     Route: 030
     Dates: start: 20091008
  5. AVONEX [Suspect]
     Route: 030
     Dates: start: 20110804

REACTIONS (1)
  - GENERAL SYMPTOM [None]
